FAERS Safety Report 7967693-3 (Version None)
Quarter: 2011Q4

REPORT INFORMATION
  Report Type: 
  Country: None (occurrence: None)
  Receive Date: 20111207
  Receipt Date: 20111123
  Transmission Date: 20120403
  Serious: Yes (Hospitalization)
  Sender: FDA-Public Use
  Company Number: 1000025868

PATIENT
  Age: 59 Year
  Sex: Female

DRUGS (7)
  1. ESCITALOPRAM OXALATE [Suspect]
     Dosage: ORAL
     Route: 048
  2. BIOPRESS (CANDESARTAN CILEXETIL) [Concomitant]
  3. SUMATRIPTAN SUCCINATE [Concomitant]
  4. DAFALGAN (PARACETAMOL) (TABLETS) [Concomitant]
  5. VOLTAREN [Suspect]
     Indication: HEADACHE
     Dosage: 150 MG (50 MG, 3 IN 1 D), ORAL
     Route: 048
     Dates: start: 20110501, end: 20110501
  6. INDERAL [Concomitant]
  7. XANAX [Concomitant]

REACTIONS (6)
  - OESOPHAGEAL HAEMORRHAGE [None]
  - MELAENA [None]
  - HAEMOGLOBIN DECREASED [None]
  - ANAEMIA [None]
  - ASTHENIA [None]
  - GASTRIC ULCER [None]
